FAERS Safety Report 7279235-9 (Version None)
Quarter: 2011Q1

REPORT INFORMATION
  Report Type: 
  Country: None (occurrence: None)
  Receive Date: 20110207
  Receipt Date: 20110126
  Transmission Date: 20110831
  Serious: Yes (Other)
  Sender: FDA-Public Use
  Company Number: GB-PFIZER INC-2011025564

PATIENT
  Age: 21 Year
  Sex: Female

DRUGS (1)
  1. PHENYTOIN [Suspect]
     Dosage: UNK

REACTIONS (1)
  - TOXICITY TO VARIOUS AGENTS [None]
